FAERS Safety Report 18972208 (Version 1)
Quarter: 2021Q1

REPORT INFORMATION
  Report Type: Spontaneous
  Country: US (occurrence: US)
  Receive Date: 20210305
  Receipt Date: 20210305
  Transmission Date: 20210420
  Serious: Yes (Other)
  Sender: FDA-Public Use
  Company Number: US-BEH-2021129196

PATIENT
  Age: 60 Year
  Sex: Female

DRUGS (3)
  1. OXYGEN. [Concomitant]
     Active Substance: OXYGEN
     Dosage: 2 LITER AT BEDTIME
     Route: 045
  2. OXYGEN. [Concomitant]
     Active Substance: OXYGEN
     Dosage: 4 LITER
     Route: 045
  3. HIZENTRA [Suspect]
     Active Substance: HUMAN IMMUNOGLOBULIN G
     Indication: MYASTHENIA GRAVIS
     Dosage: 46 GRAM, QW
     Route: 058
     Dates: start: 202101

REACTIONS (4)
  - Off label use [Unknown]
  - No adverse event [Unknown]
  - Oxygen saturation decreased [Not Recovered/Not Resolved]
  - Heart rate increased [Not Recovered/Not Resolved]

NARRATIVE: CASE EVENT DATE: 202101
